FAERS Safety Report 10270005 (Version 2)
Quarter: 2015Q1

REPORT INFORMATION
  Report Type: Spontaneous
  Country: US (occurrence: US)
  Receive Date: 20140701
  Receipt Date: 20150121
  Transmission Date: 20150720
  Serious: Yes (Other)
  Sender: FDA-Public Use
  Company Number: US-SA-2014SA085931

PATIENT
  Age: 58 Year
  Sex: Female

DRUGS (10)
  1. LYRICA [Concomitant]
     Active Substance: PREGABALIN
     Indication: FIBROMYALGIA
     Route: 048
  2. PREDNISONE. [Concomitant]
     Active Substance: PREDNISONE
  3. FIORICET [Concomitant]
     Active Substance: ACETAMINOPHEN\BUTALBITAL\CAFFEINE
     Dates: start: 201010
  4. ULTRAM [Concomitant]
     Active Substance: TRAMADOL HYDROCHLORIDE
     Indication: PAIN
  5. MOTRIN [Concomitant]
     Active Substance: IBUPROFEN
  6. LEXAPRO [Concomitant]
     Active Substance: ESCITALOPRAM OXALATE
  7. LORTAB [Concomitant]
     Active Substance: ACETAMINOPHEN\HYDROCODONE BITARTRATE
     Dosage: 3-4 TIMES A DAY
  8. PARACETAMOL/DEXTROPROPOXYPHENE [Concomitant]
  9. AMBIEN [Suspect]
     Active Substance: ZOLPIDEM TARTRATE
     Indication: SLEEP DISORDER
     Route: 065
     Dates: start: 20140622
  10. LYRICA [Concomitant]
     Active Substance: PREGABALIN
     Indication: FIBROMYALGIA
     Dates: start: 201004

REACTIONS (14)
  - Speech disorder [Unknown]
  - Somnambulism [Unknown]
  - Feeling abnormal [Unknown]
  - Suicidal ideation [Unknown]
  - Depressed mood [Unknown]
  - Psychomotor retardation [Unknown]
  - Fatigue [Unknown]
  - Abnormal behaviour [Unknown]
  - Somatoform disorder [Unknown]
  - Drug dependence [Unknown]
  - Road traffic accident [Unknown]
  - Major depression [Unknown]
  - Disturbance in attention [Unknown]
  - Dysthymic disorder [Unknown]
